FAERS Safety Report 21325175 (Version 1)
Quarter: 2022Q3

REPORT INFORMATION
  Report Type: Spontaneous
  Country: AT (occurrence: AT)
  Receive Date: 20220912
  Receipt Date: 20220912
  Transmission Date: 20221027
  Serious: Yes (Other)
  Sender: FDA-Public Use
  Company Number: EC-2022-122610

PATIENT
  Age: 60 Year
  Sex: Female

DRUGS (2)
  1. BEXAROTENE [Suspect]
     Active Substance: BEXAROTENE
     Indication: Skin disorder
     Route: 048
     Dates: start: 201602
  2. BEXAROTENE [Suspect]
     Active Substance: BEXAROTENE
     Route: 048
     Dates: start: 201807, end: 201903

REACTIONS (6)
  - Pulmonary embolism [Unknown]
  - Constipation [Unknown]
  - Pneumonia [Unknown]
  - Staphylococcal infection [Recovered/Resolved]
  - Pruritus [Unknown]
  - Oedema peripheral [Unknown]

NARRATIVE: CASE EVENT DATE: 20180101
